FAERS Safety Report 8859711 (Version 1)
Quarter: 2012Q4

REPORT INFORMATION
  Report Type: 
  Country: US (occurrence: US)
  Receive Date: 20121025
  Receipt Date: 20121025
  Transmission Date: 20130627
  Serious: Yes (Other)
  Sender: FDA-Public Use
  Company Number: US-ABBOTT-12P-163-0943690-00

PATIENT
  Age: 25 Year
  Sex: Female
  Weight: 71.28 kg

DRUGS (2)
  1. LUPRON DEPOT 3.75 MG [Suspect]
     Indication: ENDOMETRIOSIS
     Route: 030
     Dates: start: 20120125, end: 20120725
  2. TRAMADOL [Concomitant]
     Indication: RHEUMATOID ARTHRITIS

REACTIONS (3)
  - Convulsion [Recovered/Resolved]
  - Loss of consciousness [Unknown]
  - Thirst [Unknown]
